APPROVED DRUG PRODUCT: ZONISADE
Active Ingredient: ZONISAMIDE
Strength: 100MG/5ML
Dosage Form/Route: SUSPENSION;ORAL
Application: N214273 | Product #001
Applicant: AZURITY PHARMACEUTICALS INC
Approved: Jul 15, 2022 | RLD: Yes | RS: Yes | Type: RX

PATENTS:
Patent 11478456 | Expires: Aug 18, 2038
Patent 12491179 | Expires: Aug 18, 2038
Patent 11529333 | Expires: Aug 18, 2038